FAERS Safety Report 17709144 (Version 1)
Quarter: 2020Q2

REPORT INFORMATION
  Report Type: Report from Study
  Country: US (occurrence: US)
  Receive Date: 20200426
  Receipt Date: 20200426
  Transmission Date: 20200714
  Serious: Yes (Hospitalization, Other)
  Sender: FDA-Public Use
  Company Number: US-UCBSA-2020015908

PATIENT
  Age: 41 Year
  Sex: Male
  Weight: 121.5 kg

DRUGS (31)
  1. MAGNESIUM SULFATE. [Concomitant]
     Active Substance: MAGNESIUM SULFATE
     Indication: PRODUCT USED FOR UNKNOWN INDICATION
     Dosage: 2 GRAM (16MEQ), IN 50 ML STERILE WATER (HOSPIRA/FRESENIUS),
     Route: 042
  2. MAGNESIUM SULFATE. [Concomitant]
     Active Substance: MAGNESIUM SULFATE
     Dosage: 4 GRAM (32MEQ), IN 100 ML STERILE WATER (HOSPIRA),
     Route: 042
  3. STYE [PARAFFIN, LIQUID;WHITE SOFT PARAFFIN] [Concomitant]
     Dosage: 57.7-31.9 %, Q1H-PRN, BOTH EYES
     Route: 047
  4. LACOSAMIDE. [Suspect]
     Active Substance: LACOSAMIDE
     Indication: SEIZURE
     Dosage: 150 MILLIGRAM, 2X/DAY (BID)
     Route: 048
  5. XANAX [Concomitant]
     Active Substance: ALPRAZOLAM
     Indication: ANXIETY
     Dosage: .5MG
  6. SODIUM PHOSPHATE [Concomitant]
     Active Substance: SODIUM PHOSPHATE
     Indication: PRODUCT USED FOR UNKNOWN INDICATION
     Dosage: 20 MMOL IN 0.9 % NACI 100 ML
     Route: 042
  7. LACOSAMIDE. [Suspect]
     Active Substance: LACOSAMIDE
     Dosage: 200 MILLIGRAM, 2X/DAY (BID)
     Route: 048
  8. DILANTIN [Concomitant]
     Active Substance: PHENYTOIN
     Indication: SEIZURE
     Dosage: 500MG DIVIDED BID
  9. NORCO [Concomitant]
     Active Substance: ACETAMINOPHEN\HYDROCODONE BITARTRATE
     Indication: PRODUCT USED FOR UNKNOWN INDICATION
     Dosage: 7.5-325MG
     Route: 048
  10. VERSED [Concomitant]
     Active Substance: MIDAZOLAM HYDROCHLORIDE
     Indication: PRODUCT USED FOR UNKNOWN INDICATION
     Dosage: 5 MILLIGRAM PER MILLILITRE
  11. CLEOCIN [CLINDAMYCIN HYDROCHLORIDE] [Concomitant]
     Indication: PRODUCT USED FOR UNKNOWN INDICATION
     Dosage: CLINDAMYCIN IN 5 % DEXTROSE
     Route: 042
  12. BUSPAR [Concomitant]
     Active Substance: BUSPIRONE HYDROCHLORIDE
     Indication: ANXIETY
     Dosage: 15 MILLIGRAM, 3X/DAY (TID), AS NEEDED
     Route: 048
  13. ROCEPHIN [Concomitant]
     Active Substance: CEFTRIAXONE SODIUM
     Indication: PRODUCT USED FOR UNKNOWN INDICATION
     Dosage: 1 G IN NS (SPIKE BAG) 100 ML IVPB, 1 G, INTRAVENOUS, Q24H
     Route: 042
  14. POTASSIUM CHLORIDE. [Concomitant]
     Active Substance: POTASSIUM CHLORIDE
     Indication: PRODUCT USED FOR UNKNOWN INDICATION
     Dosage: 20 MILLIEQUIVALENT IN 100ML STERILE WATER
     Route: 042
  15. TYLENOL [Concomitant]
     Active Substance: ACETAMINOPHEN
     Dosage: SUPPOSITORY 650 MG, RECTAL, Q4H-PRN
     Route: 054
  16. DIPRIVAN [Concomitant]
     Active Substance: PROPOFOL
     Indication: PRODUCT USED FOR UNKNOWN INDICATION
     Dosage: 5 MCG/KG/MIN
     Route: 042
  17. DICLOPHENAC [Concomitant]
     Active Substance: DICLOFENAC SODIUM
     Indication: HEADACHE
     Dosage: 50 MILLIGRAM, AS NEEDED (PRN)
  18. STYE [PARAFFIN, LIQUID;WHITE SOFT PARAFFIN] [Concomitant]
     Indication: PRODUCT USED FOR UNKNOWN INDICATION
     Dosage: 57.7-31.9 %, Q8H, BOTH EYES
     Route: 047
  19. VIMPAT [Suspect]
     Active Substance: LACOSAMIDE
     Indication: PRODUCT USED FOR UNKNOWN INDICATION
     Dosage: 200 MG IN D5W 50 ML, BID
     Route: 042
     Dates: start: 20200109
  20. XANAX [Concomitant]
     Active Substance: ALPRAZOLAM
     Indication: AURA
  21. SALINE [SODIUM CHLORIDE] [Concomitant]
     Active Substance: SODIUM CHLORIDE
     Indication: PRODUCT USED FOR UNKNOWN INDICATION
     Dosage: UNK, 3X/DAY (TID)
     Route: 042
  22. PROTONIX [OMEPRAZOLE] [Concomitant]
     Active Substance: OMEPRAZOLE
     Indication: PRODUCT USED FOR UNKNOWN INDICATION
     Dosage: 40 MG DAILY
     Route: 042
  23. DEXTROSE + SODIUM CHLORIDE [Concomitant]
     Indication: PRODUCT USED FOR UNKNOWN INDICATION
     Dosage: 5 %-0.45 %
     Route: 042
  24. AZACTAM [Concomitant]
     Active Substance: AZTREONAM
     Indication: PRODUCT USED FOR UNKNOWN INDICATION
     Dosage: 2 G IN NS (SPIKE BAG) 100 ML TID
     Route: 042
  25. TRAZODONE [Concomitant]
     Active Substance: TRAZODONE HYDROCHLORIDE
     Indication: INSOMNIA
     Dosage: 50-100MG QHS
  26. TYLENOL [Concomitant]
     Active Substance: ACETAMINOPHEN
     Indication: PRODUCT USED FOR UNKNOWN INDICATION
     Dosage: 650 MILLIGRAM, 6X/DAY, PRN
     Route: 048
  27. ZOFRAN [Concomitant]
     Active Substance: ONDANSETRON HYDROCHLORIDE
     Indication: PRODUCT USED FOR UNKNOWN INDICATION
     Dosage: 4 MILLIGRAM, 4X/DAY (QID), PRN
     Route: 042
  28. SUBLIMAZE [FENTANYL] [Concomitant]
     Indication: PRODUCT USED FOR UNKNOWN INDICATION
     Dosage: 1,000 MCG IN 0.9% NACI 30 ML INFUSION, 50-100 MCG/HR,
     Route: 042
  29. MORPHINE [Concomitant]
     Active Substance: MORPHINE
     Indication: PRODUCT USED FOR UNKNOWN INDICATION
     Dosage: 2-4 MG, INTRAVENOUS, Q3H-PRN,
     Route: 042
  30. LOVENOX [Concomitant]
     Active Substance: ENOXAPARIN SODIUM
     Indication: PRODUCT USED FOR UNKNOWN INDICATION
     Dosage: 40 MILLIGRAM, DAILY
     Route: 058
  31. SODIUM PHOSPHATE [Concomitant]
     Active Substance: SODIUM PHOSPHATE
     Dosage: 20 MMOL IN 0.9 % NACI 250 ML
     Route: 042

REACTIONS (12)
  - Photophobia [Recovering/Resolving]
  - Acute respiratory failure [Recovering/Resolving]
  - Headache [Recovered/Resolved]
  - Nausea [Unknown]
  - Panic attack [Recovering/Resolving]
  - Anxiety [Recovering/Resolving]
  - Memory impairment [Recovering/Resolving]
  - Fatigue [Unknown]
  - Status epilepticus [Recovered/Resolved]
  - Insomnia [Unknown]
  - Seizure [Unknown]
  - Oedema peripheral [Unknown]

NARRATIVE: CASE EVENT DATE: 20200108
